FAERS Safety Report 10538179 (Version 1)
Quarter: 2014Q4

REPORT INFORMATION
  Report Type: Spontaneous
  Country: SE (occurrence: SE)
  Receive Date: 20141023
  Receipt Date: 20141023
  Transmission Date: 20150529
  Serious: Yes (Other)
  Sender: FDA-Public Use
  Company Number: SE-MYLANLABS-2014M1007824

PATIENT

DRUGS (10)
  1. FELODIPINE. [Concomitant]
     Active Substance: FELODIPINE
     Indication: BLOOD PRESSURE INCREASED
  2. SELOKEN                            /00376902/ [Concomitant]
     Active Substance: METOPROLOL TARTRATE
     Indication: HEART RATE INCREASED
  3. PARACETAMOL [Concomitant]
     Active Substance: ACETAMINOPHEN
     Indication: PAIN
  4. PREDNISOLONE. [Concomitant]
     Active Substance: PREDNISOLONE
     Indication: MUSCLE DISORDER
  5. ANAPEN                             /00003901/ [Concomitant]
     Active Substance: EPINEPHRINE
     Indication: PRODUCT USED FOR UNKNOWN INDICATION
  6. PREDNISOLONE. [Concomitant]
     Active Substance: PREDNISOLONE
     Indication: ARTHRITIS
     Dosage: 5 MG, QD
     Dates: start: 2004
  7. CORTISONE [Concomitant]
     Active Substance: CORTISONE\HYDROCORTISONE
     Indication: MUSCLE DISORDER
  8. THACAPZOL [Suspect]
     Active Substance: METHIMAZOLE
     Indication: HYPOTHYROIDISM
     Dosage: UNK
     Dates: start: 201304
  9. SELOKEN                            /00376902/ [Concomitant]
     Active Substance: METOPROLOL TARTRATE
     Indication: BLOOD PRESSURE INCREASED
  10. EPIPEN [Suspect]
     Active Substance: EPINEPHRINE
     Indication: PRODUCT USED FOR UNKNOWN INDICATION

REACTIONS (1)
  - Hypersensitivity [Unknown]
